FAERS Safety Report 5953249-0 (Version None)
Quarter: 2008Q4

REPORT INFORMATION
  Report Type: 
  Country: None (occurrence: None)
  Receive Date: 20081114
  Receipt Date: 20081106
  Transmission Date: 20090506
  Serious: Yes (Hospitalization)
  Sender: FDA-Public Use
  Company Number: PHHY2008JP27611

PATIENT
  Age: 60 Year
  Sex: Female

DRUGS (2)
  1. LAMISIL [Suspect]
     Dosage: 125MG PER DAY
     Route: 048
     Dates: start: 20081008
  2. TOFRANIL [Suspect]
     Dosage: UNK
     Route: 048
     Dates: start: 20081015

REACTIONS (2)
  - ERYTHEMA [None]
  - STEVENS-JOHNSON SYNDROME [None]
